FAERS Safety Report 16896737 (Version 1)
Quarter: 2019Q4

REPORT INFORMATION
  Report Type: Spontaneous
  Country: US (occurrence: US)
  Receive Date: 20191008
  Receipt Date: 20191008
  Transmission Date: 20200122
  Serious: Yes (Hospitalization)
  Sender: FDA-Public Use
  Company Number: US-BEH-2019107645

PATIENT
  Age: 29 Year
  Sex: Male
  Weight: 80 kg

DRUGS (2)
  1. RIASTAP [Suspect]
     Active Substance: FIBRINOGEN HUMAN
     Dosage: 9000 MILLIGRAM, QOW
     Route: 065
     Dates: start: 20190929
  2. RIASTAP [Suspect]
     Active Substance: FIBRINOGEN HUMAN
     Indication: FACTOR I DEFICIENCY
     Dosage: 9000 MILLIGRAM, QOW
     Route: 065

REACTIONS (3)
  - Deep vein thrombosis [Unknown]
  - Pain in extremity [Unknown]
  - Peripheral swelling [Unknown]

NARRATIVE: CASE EVENT DATE: 201909
